FAERS Safety Report 6313287-5 (Version None)
Quarter: 2009Q3

REPORT INFORMATION
  Report Type: 
  Country: None (occurrence: None)
  Receive Date: 20090818
  Receipt Date: 20090811
  Transmission Date: 20100115
  Serious: Yes (Hospitalization, Disabling)
  Sender: FDA-Public Use
  Company Number: A0784442A

PATIENT
  Age: 52 Year
  Sex: Female

DRUGS (8)
  1. AVANDIA [Suspect]
     Dosage: 4MG PER DAY
     Route: 048
     Dates: start: 20041101, end: 20070801
  2. WELLBUTRIN XL [Concomitant]
  3. AVELOX [Concomitant]
  4. CARDIZEM [Concomitant]
     Dates: end: 20041201
  5. LESCOL [Concomitant]
     Dates: end: 20041201
  6. CADUET [Concomitant]
  7. TOPROL-XL [Concomitant]
  8. SUDAFED 12 HOUR [Concomitant]

REACTIONS (2)
  - CORONARY ARTERY DISEASE [None]
  - MYOCARDIAL INFARCTION [None]
